FAERS Safety Report 14610454 (Version 6)
Quarter: 2018Q2

REPORT INFORMATION
  Report Type: Report from Study
  Country: CA (occurrence: CA)
  Receive Date: 20180307
  Receipt Date: 20180629
  Transmission Date: 20180711
  Serious: Yes (Hospitalization)
  Sender: FDA-Public Use
  Company Number: PHHY2018CA031387

PATIENT
  Age: 14 Year
  Sex: Male
  Weight: 76 kg

DRUGS (5)
  1. ERELZI [Suspect]
     Active Substance: ETANERCEPT-SZZS
     Dosage: 50 MG, QW
     Route: 058
     Dates: start: 20180221
  2. ERELZI [Suspect]
     Active Substance: ETANERCEPT-SZZS
     Dosage: 50 MG, QW
     Route: 058
     Dates: start: 20180201
  3. ERELZI [Suspect]
     Active Substance: ETANERCEPT-SZZS
     Dosage: 50 MG, QW
     Route: 058
     Dates: start: 20180214
  4. ERELZI [Suspect]
     Active Substance: ETANERCEPT-SZZS
     Dosage: 50 MG, QW
     Route: 058
     Dates: start: 2018
  5. ERELZI [Suspect]
     Active Substance: ETANERCEPT-SZZS
     Indication: JUVENILE IDIOPATHIC ARTHRITIS
     Dosage: 50 MG, QW
     Route: 058
     Dates: start: 20180131

REACTIONS (21)
  - Migraine [Unknown]
  - Asthenia [Unknown]
  - Weight decreased [Unknown]
  - Movement disorder [Unknown]
  - Gait disturbance [Not Recovered/Not Resolved]
  - Muscular weakness [Not Recovered/Not Resolved]
  - Visual impairment [Unknown]
  - Heat stroke [Unknown]
  - Muscle twitching [Unknown]
  - Quality of life decreased [Not Recovered/Not Resolved]
  - Muscle spasms [Unknown]
  - Fall [Unknown]
  - Concomitant disease aggravated [Not Recovered/Not Resolved]
  - Headache [Unknown]
  - Nausea [Unknown]
  - Peripheral coldness [Unknown]
  - Hypoaesthesia [Not Recovered/Not Resolved]
  - Nervous system disorder [Unknown]
  - Malaise [Unknown]
  - Amnesia [Unknown]
  - Vomiting [Unknown]

NARRATIVE: CASE EVENT DATE: 201802
